FAERS Safety Report 16628169 (Version 6)
Quarter: 2021Q1

REPORT INFORMATION
  Report Type: Report from Study
  Country: US (occurrence: US)
  Receive Date: 20190724
  Receipt Date: 20210305
  Transmission Date: 20210419
  Serious: No
  Sender: FDA-Public Use
  Company Number: PHEH2019US030426

PATIENT
  Sex: Male

DRUGS (3)
  1. ENTRESTO [Suspect]
     Active Substance: SACUBITRIL\VALSARTAN
     Dosage: 100 MG (49/61 MG)
     Route: 065
  2. ENTRESTO [Suspect]
     Active Substance: SACUBITRIL\VALSARTAN
     Dosage: 50 MG, BID (24.26 MG)
     Route: 065
  3. ENTRESTO [Suspect]
     Active Substance: SACUBITRIL\VALSARTAN
     Indication: CARDIAC FAILURE CONGESTIVE
     Dosage: 50 MG BID (SACUBITRIL 24 MG/ VALSARTAN 26 MG), UNK
     Route: 048

REACTIONS (6)
  - Pollakiuria [Unknown]
  - Insomnia [Unknown]
  - Hypertension [Unknown]
  - Blood pressure fluctuation [Unknown]
  - Fatigue [Unknown]
  - Abdominal pain upper [Unknown]
